FAERS Safety Report 8981520 (Version 1)
Quarter: 2012Q4

REPORT INFORMATION
  Report Type: 
  Country: US (occurrence: US)
  Receive Date: 20121221
  Receipt Date: 20121221
  Transmission Date: 20130627
  Serious: Yes (Other)
  Sender: FDA-Public Use
  Company Number: US-JNJFOC-20121209688

PATIENT
  Age: 83 Year
  Sex: Female
  Weight: 61.24 kg

DRUGS (5)
  1. EXTRA STRENGTH TYLENOL [Suspect]
     Indication: ARTHRITIS
     Route: 048
  2. WARFARIN [Interacting]
     Indication: ANTICOAGULANT THERAPY
     Route: 065
  3. STEROIDS NOS [Concomitant]
     Route: 065
  4. PHENERGAN [Concomitant]
     Route: 065
  5. NEPHROCAPS [Concomitant]
     Route: 065

REACTIONS (2)
  - Drug interaction [Unknown]
  - International normalised ratio increased [Unknown]
